FAERS Safety Report 7808602-7 (Version None)
Quarter: 2011Q4

REPORT INFORMATION
  Report Type: 
  Country: None (occurrence: None)
  Receive Date: 20111012
  Receipt Date: 20111007
  Transmission Date: 20120403
  Serious: No
  Sender: FDA-Public Use
  Company Number: US-PFIZER INC-2011201370

PATIENT
  Sex: Male
  Weight: 88.435 kg

DRUGS (6)
  1. INSPRA [Suspect]
     Dosage: 50 MG, UNK
     Route: 048
     Dates: start: 20110801, end: 20110801
  2. COREG CR [Concomitant]
     Indication: BLOOD PRESSURE ABNORMAL
     Dosage: 12.5 MG, 3X/DAY
  3. GEMFIBROZIL [Concomitant]
     Indication: BLOOD CHOLESTEROL ABNORMAL
     Dosage: 600 MG, 2X/DAY
  4. AVAPRO [Concomitant]
     Indication: BLOOD PRESSURE ABNORMAL
     Dosage: 300 MG, DAILY
  5. TRAVATAN [Concomitant]
     Indication: INTRAOCULAR PRESSURE TEST ABNORMAL
     Dosage: 1 GTT IN EACH EYE, DAILY
  6. INSPRA [Suspect]
     Indication: ADRENAL NEOPLASM
     Dosage: 50 MG, 4X/DAY
     Route: 048

REACTIONS (1)
  - BLOOD PRESSURE INCREASED [None]
